FAERS Safety Report 4819101-9 (Version None)
Quarter: 2005Q4

REPORT INFORMATION
  Report Type: 
  Country: None (occurrence: None)
  Receive Date: 20051103
  Receipt Date: 20050913
  Transmission Date: 20060501
  Serious: Yes (Other)
  Sender: FDA-Public Use
  Company Number: AU-NOVOPROD-246889

PATIENT
  Age: 35 Year
  Sex: Female
  Weight: 93 kg

DRUGS (2)
  1. PROTAPHANE HM PENFILL [Suspect]
     Indication: ILL-DEFINED DISORDER
  2. PROTAPHANE [Concomitant]
     Indication: ILL-DEFINED DISORDER
     Dosage: 6 IU, QD
     Dates: start: 20050910

REACTIONS (5)
  - DRUG EXPOSURE DURING PREGNANCY [None]
  - HEART RATE INCREASED [None]
  - INFECTION [None]
  - PALPITATIONS [None]
  - PHARMACEUTICAL PRODUCT COMPLAINT [None]
